FAERS Safety Report 21961535 (Version 3)
Quarter: 2023Q1

REPORT INFORMATION
  Report Type: Spontaneous
  Country: US (occurrence: US)
  Receive Date: 20230207
  Receipt Date: 20230328
  Transmission Date: 20230418
  Serious: No
  Sender: FDA-Public Use
  Company Number: US-LUPIN PHARMACEUTICALS INC.-2023-00776

PATIENT
  Age: 84 Year
  Sex: Female

DRUGS (1)
  1. TRAMADOL HYDROCHLORIDE EXTENDED-RELEASE TABLETS [Suspect]
     Active Substance: TRAMADOL HYDROCHLORIDE
     Indication: Osteoarthritis
     Dosage: UNK, QD (ONCE DAILY)
     Route: 065

REACTIONS (1)
  - Product residue present [Unknown]
